FAERS Safety Report 7802138-5 (Version None)
Quarter: 2011Q4

REPORT INFORMATION
  Report Type: 
  Country: None (occurrence: None)
  Receive Date: 20111007
  Receipt Date: 20110930
  Transmission Date: 20120403
  Serious: Yes (Death, Hospitalization)
  Sender: FDA-Public Use
  Company Number: FR-CEPHALON-2011005192

PATIENT
  Sex: Female
  Weight: 58 kg

DRUGS (6)
  1. PANTOPRAZOLE SODIUM [Concomitant]
     Dates: start: 20110830, end: 20110905
  2. VALACYCLOVIR HYDROCHLORIDE [Concomitant]
     Dates: start: 20110830, end: 20110905
  3. ALLOPURINOL [Concomitant]
     Dates: start: 20110830
  4. BENDAMUSTINE HCL [Suspect]
     Indication: ADULT T-CELL LYMPHOMA/LEUKAEMIA
     Route: 041
     Dates: start: 20110421, end: 20110809
  5. ATARAX [Concomitant]
     Dates: start: 20110830
  6. AMLODIPINE BESYLATE [Concomitant]
     Dates: start: 20110830

REACTIONS (4)
  - INFECTION [None]
  - CEREBRAL HAEMORRHAGE [None]
  - ADULT T-CELL LYMPHOMA/LEUKAEMIA [None]
  - PANCYTOPENIA [None]
